FAERS Safety Report 16266332 (Version 2)
Quarter: 2019Q2

REPORT INFORMATION
  Report Type: Spontaneous
  Country: CH (occurrence: CH)
  Receive Date: 20190502
  Receipt Date: 20190614
  Transmission Date: 20190711
  Serious: Yes (Death, Life-Threatening, Other)
  Sender: FDA-Public Use
  Company Number: CH-ASTRAZENECA-2019SE59101

PATIENT
  Age: 879 Month
  Sex: Male

DRUGS (6)
  1. TAMPOCOR [Concomitant]
     Indication: ARRHYTHMIA
  2. TROMCARDIN [Concomitant]
     Active Substance: MAGNESIUM ASPARTATE\POTASSIUM ASPARTATE
     Indication: SUPPLEMENTATION THERAPY
  3. DOCITON [Concomitant]
     Active Substance: PROPRANOLOL HYDROCHLORIDE
     Indication: HYPERTONIA
  4. TAGRISSO [Suspect]
     Active Substance: OSIMERTINIB
     Indication: NON-SMALL CELL LUNG CANCER METASTATIC
     Route: 048
     Dates: start: 201810, end: 201903
  5. CLOPIDOGREL [Concomitant]
     Active Substance: CLOPIDOGREL BISULFATE
     Indication: ANTICOAGULANT THERAPY
  6. TAVOR [Concomitant]
     Indication: ANXIETY

REACTIONS (5)
  - Cardiac failure [Fatal]
  - Peripheral swelling [Fatal]
  - Hypotension [Fatal]
  - Cardiac failure [Unknown]
  - Dyspnoea [Fatal]

NARRATIVE: CASE EVENT DATE: 201902
